FAERS Safety Report 8563838-5 (Version None)
Quarter: 2012Q3

REPORT INFORMATION
  Report Type: 
  Country: None (occurrence: None)
  Receive Date: 20120726
  Receipt Date: 20120726
  Transmission Date: 20120928
  Serious: No
  Sender: FDA-Public Use
  Company Number: None

PATIENT
  Sex: Female
  Weight: 37.6486 kg

DRUGS (1)
  1. RITALIN [Suspect]
     Indication: ATTENTION DEFICIT/HYPERACTIVITY DISORDER
     Dosage: RITALIN 10   2 1/2 AM  2 NOON PO
     Route: 048
     Dates: start: 20090921

REACTIONS (2)
  - DYSPHEMIA [None]
  - PRODUCT SUBSTITUTION ISSUE [None]
